FAERS Safety Report 19154495 (Version 1)
Quarter: 2021Q2

REPORT INFORMATION
  Report Type: Spontaneous
  Country: JP (occurrence: JP)
  Receive Date: 20210419
  Receipt Date: 20210419
  Transmission Date: 20210717
  Serious: Yes (Other)
  Sender: FDA-Public Use
  Company Number: JP-PFIZER INC-2021377950

PATIENT
  Age: 9 Decade
  Sex: Female

DRUGS (1)
  1. IBRANCE [Suspect]
     Active Substance: PALBOCICLIB
     Indication: BREAST CANCER METASTATIC
     Dosage: 75 (UNIT NOT PROVIDED), DAILY
     Route: 048

REACTIONS (3)
  - Small intestinal haemorrhage [Unknown]
  - Duodenal stenosis [Unknown]
  - Neoplasm progression [Unknown]
